FAERS Safety Report 24418055 (Version 2)
Quarter: 2025Q2

REPORT INFORMATION
  Report Type: Spontaneous
  Country: JP (occurrence: JP)
  Receive Date: 20241009
  Receipt Date: 20250404
  Transmission Date: 20250716
  Serious: Yes (Hospitalization, Other)
  Sender: AMGEN
  Company Number: JP-ONO-2024JP020293

PATIENT
  Age: 73 Year
  Sex: Male

DRUGS (2)
  1. KYPROLIS [Suspect]
     Active Substance: CARFILZOMIB
     Indication: Plasma cell myeloma
     Route: 041
  2. DEXAMETHASONE [Concomitant]
     Active Substance: DEXAMETHASONE
     Indication: Plasma cell myeloma
     Route: 065

REACTIONS (5)
  - Prerenal failure [Recovering/Resolving]
  - Dehydration [Unknown]
  - Thrombotic microangiopathy [Recovering/Resolving]
  - Drug-induced liver injury [Recovering/Resolving]
  - Bacterial infection [Unknown]
